FAERS Safety Report 18441958 (Version 2)
Quarter: 2020Q4

REPORT INFORMATION
  Report Type: Report from Study
  Country: LB (occurrence: LB)
  Receive Date: 20201029
  Receipt Date: 20201127
  Transmission Date: 20210114
  Serious: Yes (Other)
  Sender: FDA-Public Use
  Company Number: LB-SEATTLE GENETICS-2020SGN02949

PATIENT
  Sex: Male

DRUGS (1)
  1. BRENTUXIMAB VEDOTIN [Suspect]
     Active Substance: BRENTUXIMAB VEDOTIN
     Indication: HODGKIN^S DISEASE
     Dosage: 180 MILLIGRAM
     Route: 042
     Dates: start: 20200518, end: 20200928

REACTIONS (4)
  - Decreased immune responsiveness [Unknown]
  - Neuropathy peripheral [Unknown]
  - Guillain-Barre syndrome [Unknown]
  - Asthenia [Unknown]
